FAERS Safety Report 9765503 (Version 3)
Quarter: 2014Q2

REPORT INFORMATION
  Report Type: Spontaneous
  Country: US (occurrence: US)
  Receive Date: 20131217
  Receipt Date: 20140501
  Transmission Date: 20141212
  Serious: No
  Sender: FDA-Public Use
  Company Number: US-BIOGENIDEC-2013BI112669

PATIENT
  Age: 75 Year
  Sex: Male
  Weight: 89 kg

DRUGS (13)
  1. TECFIDERA [Suspect]
     Indication: MULTIPLE SCLEROSIS
     Route: 048
     Dates: start: 20130925
  2. TECFIDERA [Suspect]
     Indication: MULTIPLE SCLEROSIS
     Route: 048
     Dates: end: 20131106
  3. SIMVASTATIN [Concomitant]
  4. LOSARTAN HCT 100/25 MG [Concomitant]
  5. ALFUZOSIN HCL [Concomitant]
  6. ETODOLAC [Concomitant]
     Route: 048
  7. ETODOLAC [Concomitant]
     Route: 048
  8. PANTOPRAZOLE [Concomitant]
     Dates: start: 2011
  9. ASPIRIN [Concomitant]
  10. ZANTAC [Concomitant]
     Dates: start: 2013
  11. TYLENOL [Concomitant]
     Dates: start: 2013
  12. AMPYRA [Concomitant]
     Indication: MULTIPLE SCLEROSIS
     Route: 048
     Dates: start: 20130117, end: 2013
  13. AMPYRA [Concomitant]
     Indication: MULTIPLE SCLEROSIS
     Route: 048
     Dates: start: 2013, end: 20130925

REACTIONS (6)
  - Gait disturbance [Not Recovered/Not Resolved]
  - Balance disorder [Not Recovered/Not Resolved]
  - Underdose [Recovered/Resolved]
  - Neck pain [Recovered/Resolved]
  - Retching [Recovered/Resolved]
  - Abdominal discomfort [Recovered/Resolved]
